FAERS Safety Report 6046226-5 (Version None)
Quarter: 2009Q1

REPORT INFORMATION
  Report Type: 
  Country: None (occurrence: None)
  Receive Date: 20090121
  Receipt Date: 20090121
  Transmission Date: 20090719
  Serious: No
  Sender: FDA-Public Use
  Company Number: None

PATIENT
  Age: 57 Year
  Sex: Female
  Weight: 508.0287 kg

DRUGS (1)
  1. ZICAM NASAL SPRAY [Suspect]
     Indication: BRONCHITIS
     Dosage: 1 SPRAY IN EACH NOSTRIL 1 TIME ONLY NASAL 1 TIME ONLY EVER
     Route: 045
     Dates: start: 20081120, end: 20081120

REACTIONS (3)
  - AGEUSIA [None]
  - ANOSMIA [None]
  - BURNING SENSATION [None]
